FAERS Safety Report 8742372 (Version 3)
Quarter: 2012Q4

REPORT INFORMATION
  Report Type: 
  Country: US (occurrence: US)
  Receive Date: 20120824
  Receipt Date: 20121023
  Transmission Date: 20130627
  Serious: Yes (Disabling, Other)
  Sender: FDA-Public Use
  Company Number: US-ASTELLAS-2012US006924

PATIENT
  Age: 66 Year
  Sex: Female

DRUGS (3)
  1. VESICARE [Suspect]
     Indication: HYPERTONIC BLADDER
     Dosage: UNK
     Route: 048
     Dates: start: 20080804, end: 20090309
  2. ESTRACE [Suspect]
     Indication: HYPERTONIC BLADDER
     Dosage: UNK
     Route: 061
     Dates: start: 2008
  3. UNSPECIFIED INGREDIENTS [Suspect]
     Indication: DIABETES MELLITUS
     Dosage: UNK
     Route: 065

REACTIONS (20)
  - Ocular hyperaemia [Unknown]
  - Eye pruritus [Unknown]
  - Dry eye [Recovered/Resolved]
  - Amnesia [Recovering/Resolving]
  - Loss of consciousness [Unknown]
  - Abasia [Unknown]
  - Aphasia [Unknown]
  - Visual acuity reduced [Not Recovered/Not Resolved]
  - Rotator cuff repair [Unknown]
  - Arthralgia [Not Recovered/Not Resolved]
  - Myalgia [Not Recovered/Not Resolved]
  - Muscle spasms [Unknown]
  - Arthritis [Not Recovered/Not Resolved]
  - Gait disturbance [Unknown]
  - Fall [Recovered/Resolved]
  - Blood glucose increased [Unknown]
  - Eye disorder [Unknown]
  - Rash pruritic [Unknown]
  - Pain [Not Recovered/Not Resolved]
  - Epigastric discomfort [Unknown]
